FAERS Safety Report 5194789-4 (Version None)
Quarter: 2006Q4

REPORT INFORMATION
  Report Type: 
  Country: None (occurrence: None)
  Receive Date: 20061229
  Receipt Date: 20061218
  Transmission Date: 20070319
  Serious: Yes (Other)
  Sender: FDA-Public Use
  Company Number: US-AMGEN-US204241

PATIENT

DRUGS (1)
  1. ENBREL [Suspect]
     Indication: POLYARTHRITIS

REACTIONS (1)
  - LYMPHOMA [None]
